FAERS Safety Report 9434276 (Version 2)
Quarter: 2013Q4

REPORT INFORMATION
  Report Type: Spontaneous
  Country: GB (occurrence: GB)
  Receive Date: 20130801
  Receipt Date: 20131122
  Transmission Date: 20140711
  Serious: Yes (Death)
  Sender: FDA-Public Use
  Company Number: PHFR2013GB004407

PATIENT
  Age: 30 Year
  Sex: Male

DRUGS (3)
  1. CLOZAPINE [Suspect]
     Indication: SCHIZOPHRENIA
     Dosage: UNK
     Route: 048
  2. CLOZAPINE [Suspect]
     Dosage: UNK
     Route: 048
     Dates: end: 201212
  3. DENZAPINE [Suspect]
     Indication: SCHIZOPHRENIA
     Dosage: UNK
     Route: 048
     Dates: start: 201212

REACTIONS (3)
  - Overdose [Fatal]
  - Convulsion [Fatal]
  - Cardiac arrest [Fatal]
